FAERS Safety Report 4522715-7 (Version None)
Quarter: 2004Q4

REPORT INFORMATION
  Report Type: 
  Country: None (occurrence: None)
  Receive Date: 20041207
  Receipt Date: 20041122
  Transmission Date: 20050328
  Serious: Yes (Hospitalization)
  Sender: FDA-Public Use
  Company Number: FR_041105271

PATIENT
  Age: 56 Year
  Sex: Female

DRUGS (3)
  1. ZYPREXA [Suspect]
     Indication: BIPOLAR I DISORDER
     Dates: start: 20040610, end: 20040622
  2. NEXEN (NIMESULIDE) [Concomitant]
  3. XYZALL (LEVOCETIRIZINE) [Concomitant]

REACTIONS (2)
  - CREATININE RENAL CLEARANCE DECREASED [None]
  - HEPATOCELLULAR DAMAGE [None]
